FAERS Safety Report 5020140-6 (Version None)
Quarter: 2006Q2

REPORT INFORMATION
  Report Type: 
  Country: None (occurrence: None)
  Receive Date: 20060602
  Receipt Date: 20060511
  Transmission Date: 20061013
  Serious: Yes (Other)
  Sender: FDA-Public Use
  Company Number: ES200604000859

PATIENT
  Sex: Female

DRUGS (9)
  1. CYMBALTA [Suspect]
     Indication: DEPRESSION
     Dosage: SEE IMAGE
     Dates: start: 20060302, end: 20060316
  2. CYMBALTA [Suspect]
     Indication: DEPRESSION
     Dosage: SEE IMAGE
     Dates: start: 20060316, end: 20060327
  3. CYMBALTA [Suspect]
     Indication: DEPRESSION
     Dosage: SEE IMAGE
     Dates: start: 20060327
  4. ZYPREXA [Concomitant]
     Indication: PSYCHOTIC DISORDER
  5. VENLAFAXINE HCL [Concomitant]
  6. TRAZODONE HCL [Concomitant]
  7. DIAZEPAM [Concomitant]
  8. LEVOTHROID [Concomitant]
  9. PLATELET AGGREGATION INHIBITORS [Concomitant]

REACTIONS (1)
  - GRANULOCYTOSIS [None]
